FAERS Safety Report 5479337-3 (Version None)
Quarter: 2007Q4

REPORT INFORMATION
  Report Type: 
  Country: None (occurrence: None)
  Receive Date: 20071003
  Receipt Date: 20071003
  Transmission Date: 20080405
  Serious: No
  Sender: FDA-Public Use
  Company Number: None

PATIENT
  Age: 59 Year
  Sex: Female

DRUGS (1)
  1. FOSAMAX [Suspect]
     Dosage: 70 MG WEEKLY ORAL
     Route: 048
     Dates: start: 20050701, end: 20051201

REACTIONS (6)
  - ANXIETY [None]
  - JOINT CREPITATION [None]
  - MUSCLE SPASMS [None]
  - PAIN IN EXTREMITY [None]
  - PAIN IN JAW [None]
  - TENDONITIS [None]
